FAERS Safety Report 20655319 (Version 3)
Quarter: 2023Q1

REPORT INFORMATION
  Report Type: Report from Study
  Country: US (occurrence: US)
  Receive Date: 20220330
  Receipt Date: 20230331
  Transmission Date: 20230417
  Serious: Yes (Hospitalization, Other)
  Sender: FDA-Public Use
  Company Number: US-SHIRE-US202030668

PATIENT
  Sex: Female

DRUGS (1)
  1. HUMAN IMMUNOGLOBULIN G [Suspect]
     Active Substance: HUMAN IMMUNOGLOBULIN G
     Indication: Primary immunodeficiency syndrome
     Dosage: UNK
     Route: 065

REACTIONS (12)
  - Illness [Unknown]
  - Autoimmune disorder [Unknown]
  - Lung disorder [Unknown]
  - Volume blood decreased [Unknown]
  - Lichen planus [Unknown]
  - Hidradenitis [Unknown]
  - Thyroid disorder [Unknown]
  - Staphylococcal infection [Recovered/Resolved]
  - Neutrophil count decreased [Unknown]
  - Eye disorder [Unknown]
  - Arthralgia [Recovering/Resolving]
  - Fatigue [Recovering/Resolving]
